FAERS Safety Report 8367678-1 (Version None)
Quarter: 2012Q2

REPORT INFORMATION
  Report Type: 
  Country: None (occurrence: None)
  Receive Date: 20120517
  Receipt Date: 20120511
  Transmission Date: 20120825
  Serious: Yes (Hospitalization)
  Sender: FDA-Public Use
  Company Number: US-GLAXOSMITHKLINE-A0889139A

PATIENT
  Age: 71 Year
  Sex: Female
  Weight: 80 kg

DRUGS (5)
  1. AVANDIA [Suspect]
     Indication: TYPE 2 DIABETES MELLITUS
     Dosage: 8MG PER DAY
     Route: 048
     Dates: start: 20011101, end: 20070522
  2. NORVASC [Concomitant]
  3. LISINOPRIL [Concomitant]
  4. ZETIA [Concomitant]
  5. TOPROL-XL [Concomitant]

REACTIONS (4)
  - ACUTE CORONARY SYNDROME [None]
  - CORONARY ARTERY DISEASE [None]
  - MYOCARDIAL ISCHAEMIA [None]
  - MYOCARDIAL INFARCTION [None]
